FAERS Safety Report 23914487 (Version 3)
Quarter: 2024Q2

REPORT INFORMATION
  Report Type: Spontaneous
  Country: US (occurrence: US)
  Receive Date: 20240529
  Receipt Date: 20240627
  Transmission Date: 20240716
  Serious: Yes (Life-Threatening, Hospitalization, Other)
  Sender: FDA-Public Use
  Company Number: US-SUN PHARMACEUTICAL INDUSTRIES LTD-2024R1-447782

PATIENT
  Age: 36 Year
  Sex: Male

DRUGS (2)
  1. CEFTRIAXONE [Suspect]
     Active Substance: CEFTRIAXONE\CEFTRIAXONE SODIUM
     Indication: Gonococcal infection
     Dosage: 1 DOSE
     Route: 065
  2. DOXYCYCLINE [Suspect]
     Active Substance: DOXYCYCLINE\DOXYCYCLINE HYCLATE
     Indication: Gonococcal infection
     Dosage: UNK
     Route: 048

REACTIONS (4)
  - Lymphadenopathy [Recovering/Resolving]
  - Orthopoxvirus test positive [Unknown]
  - Streptococcus test positive [Unknown]
  - Neisseria test positive [Unknown]
